FAERS Safety Report 22189959 (Version 1)
Quarter: 2023Q2

REPORT INFORMATION
  Report Type: Spontaneous
  Country: CN (occurrence: CN)
  Receive Date: 20230410
  Receipt Date: 20230410
  Transmission Date: 20230722
  Serious: Yes (Other)
  Sender: FDA-Public Use
  Company Number: CN-BAYER-2021A252908

PATIENT
  Age: 64 Year
  Sex: Male

DRUGS (1)
  1. XARELTO [Suspect]
     Active Substance: RIVAROXABAN
     Indication: Pulmonary embolism
     Route: 048

REACTIONS (4)
  - Pulmonary arterial hypertension [Unknown]
  - Dyspnoea [Unknown]
  - Productive cough [Unknown]
  - Oedema peripheral [Unknown]
